FAERS Safety Report 24006022 (Version 1)
Quarter: 2024Q2

REPORT INFORMATION
  Report Type: Spontaneous
  Country: ES (occurrence: ES)
  Receive Date: 20240624
  Receipt Date: 20240624
  Transmission Date: 20240715
  Serious: Yes (Life-Threatening, Other)
  Sender: FDA-Public Use
  Company Number: None

PATIENT
  Age: 17 Year
  Sex: Female

DRUGS (1)
  1. ACETAMINOPHEN [Suspect]
     Active Substance: ACETAMINOPHEN
     Indication: Product used for unknown indication
     Dosage: 10 DOSAGE FORM (10 TABLETS OF 1 G)
     Route: 048
     Dates: start: 20240523

REACTIONS (3)
  - Drug-induced liver injury [Unknown]
  - Suicide attempt [Unknown]
  - Vomiting [Unknown]

NARRATIVE: CASE EVENT DATE: 20240523
